FAERS Safety Report 9221779 (Version 1)
Quarter: 2013Q2

REPORT INFORMATION
  Report Type: Spontaneous
  Country: FR (occurrence: FR)
  Receive Date: 20130410
  Receipt Date: 20130410
  Transmission Date: 20140414
  Serious: Yes (Hospitalization)
  Sender: FDA-Public Use
  Company Number: FR-US-EMD SERONO, INC.-7202891

PATIENT
  Age: 29 Year
  Sex: Female

DRUGS (4)
  1. GONAL-F [Suspect]
     Indication: ASSISTED FERTILISATION
     Route: 058
     Dates: start: 20120511, end: 20120517
  2. GONAL-F [Suspect]
     Route: 058
     Dates: start: 20120518, end: 20120518
  3. ORGALUTRAN [Suspect]
     Indication: ASSISTED FERTILISATION
     Route: 058
     Dates: start: 20120516, end: 20120520
  4. GONADOTROPHINE CHORIONIQUE ENDO 5000 UI/1ML [Suspect]
     Indication: ASSISTED FERTILISATION
     Route: 030
     Dates: start: 20120521, end: 20120521

REACTIONS (3)
  - Haematocrit increased [Recovered/Resolved]
  - Ovarian hyperstimulation syndrome [Recovered/Resolved]
  - Ascites [Recovered/Resolved]
